FAERS Safety Report 21696991 (Version 1)
Quarter: 2022Q4

REPORT INFORMATION
  Report Type: Report from Study
  Country: US (occurrence: US)
  Receive Date: 20221208
  Receipt Date: 20221208
  Transmission Date: 20230112
  Serious: No
  Sender: FDA-Public Use
  Company Number: US-ABBVIE-4189561

PATIENT
  Sex: Male

DRUGS (1)
  1. HUMIRA [Suspect]
     Active Substance: ADALIMUMAB
     Indication: Ankylosing spondylitis
     Dosage: CF, ONSET OF ANKYLOSING SPONDYLITIS FLARE UP WAS 2022
     Route: 058
     Dates: start: 20220501

REACTIONS (1)
  - Ankylosing spondylitis [Not Recovered/Not Resolved]
